FAERS Safety Report 7250842-2 (Version None)
Quarter: 2011Q1

REPORT INFORMATION
  Report Type: 
  Country: None (occurrence: None)
  Receive Date: 20110128
  Receipt Date: 20110125
  Transmission Date: 20110831
  Serious: Yes (Other)
  Sender: FDA-Public Use
  Company Number: DE-ABBOTT-11P-062-0696263-00

PATIENT
  Sex: Male
  Weight: 105 kg

DRUGS (2)
  1. HUMIRA [Suspect]
     Indication: RHEUMATOID ARTHRITIS
     Route: 058
     Dates: start: 20091019, end: 20101201
  2. HUMIRA [Suspect]
     Indication: PROSTATIC SPECIFIC ANTIGEN

REACTIONS (3)
  - POLYCYTHAEMIA VERA [None]
  - FATIGUE [None]
  - PSORIASIS [None]
